FAERS Safety Report 20695602 (Version 1)
Quarter: 2022Q2

REPORT INFORMATION
  Report Type: Spontaneous
  Country: US (occurrence: US)
  Receive Date: 20220411
  Receipt Date: 20220411
  Transmission Date: 20220721
  Serious: No
  Sender: FDA-Public Use
  Company Number: US-PFIZER INC-202100963372

PATIENT
  Age: 76 Year
  Sex: Female
  Weight: 61.23 kg

DRUGS (3)
  1. IBRANCE [Suspect]
     Active Substance: PALBOCICLIB
     Indication: Breast cancer
     Dosage: 100 MG
     Dates: start: 20210615, end: 20210706
  2. IBRANCE [Suspect]
     Active Substance: PALBOCICLIB
     Dosage: 75 MG
     Dates: start: 20210729
  3. FULVESTRANT [Concomitant]
     Active Substance: FULVESTRANT
     Indication: Oestrogen therapy
     Dosage: 250 MG (PER SYRINGE, TOTAL OF 500 MG)
     Dates: start: 20210402

REACTIONS (11)
  - Product dose omission issue [Unknown]
  - Full blood count abnormal [Recovered/Resolved]
  - Fatigue [Unknown]
  - Flatulence [Unknown]
  - Asthenia [Unknown]
  - Decreased appetite [Unknown]
  - Immobilisation syndrome [Unknown]
  - White blood cell count decreased [Recovered/Resolved]
  - Red blood cell count decreased [Recovered/Resolved]
  - Neutrophil count decreased [Recovered/Resolved]
  - Epistaxis [Unknown]
